FAERS Safety Report 13145624 (Version 1)
Quarter: 2017Q1

REPORT INFORMATION
  Report Type: Report from Study
  Country: US (occurrence: US)
  Receive Date: 20170124
  Receipt Date: 20170124
  Transmission Date: 20170428
  Serious: Yes (Hospitalization)
  Sender: FDA-Public Use
  Company Number: US-ACTELION-A-US2015-128816

PATIENT
  Age: 49 Year
  Sex: Female

DRUGS (2)
  1. PREDNISONE. [Concomitant]
     Active Substance: PREDNISONE
  2. VELETRI [Suspect]
     Active Substance: EPOPROSTENOL
     Indication: PULMONARY ARTERIAL HYPERTENSION
     Dosage: 9.2 NG/KG, PER MIN
     Route: 042
     Dates: start: 20151203

REACTIONS (19)
  - Dermatitis contact [Recovering/Resolving]
  - Skin irritation [Unknown]
  - Petechiae [Unknown]
  - Condition aggravated [Recovered/Resolved]
  - Pulmonary arterial hypertension [Recovered/Resolved]
  - Catheter site pruritus [Unknown]
  - Catheter site discharge [Unknown]
  - Rash [Unknown]
  - Dyspnoea [Recovered/Resolved]
  - Skin exfoliation [Unknown]
  - Nausea [Unknown]
  - Dizziness [Unknown]
  - Erythema [Recovered/Resolved]
  - Fluid retention [Recovered/Resolved]
  - Diarrhoea [Unknown]
  - Lung transplant [Recovered/Resolved]
  - Infusion site vesicles [Unknown]
  - Headache [Unknown]
  - Catheter site haemorrhage [Unknown]

NARRATIVE: CASE EVENT DATE: 20160416
